FAERS Safety Report 4404289-4 (Version None)
Quarter: 2004Q3

REPORT INFORMATION
  Report Type: 
  Country: None (occurrence: None)
  Receive Date: 20040714
  Receipt Date: 20040630
  Transmission Date: 20050211
  Serious: Yes (Other)
  Sender: FDA-Public Use
  Company Number: 200410407BCA

PATIENT
  Age: 47 Year
  Sex: Male
  Weight: 87.5 kg

DRUGS (4)
  1. GAMUNEX [Suspect]
     Indication: INFLAMMATION
     Dosage: SEE IMAGE
     Route: 042
  2. GAMUNEX [Suspect]
     Indication: NERVOUS SYSTEM DISORDER
     Dosage: SEE IMAGE
     Route: 042
  3. GAMUNEX [Suspect]
  4. GAMUNEX [Suspect]

REACTIONS (3)
  - DYSPNOEA [None]
  - HEADACHE [None]
  - HYPERTENSION [None]
